FAERS Safety Report 10994824 (Version 4)
Quarter: 2019Q1

REPORT INFORMATION
  Report Type: Report from Study
  Country: None (occurrence: CA)
  Receive Date: 20150407
  Receipt Date: 20190103
  Transmission Date: 20190417
  Serious: Yes (Disabling, Other)
  Sender: FDA-Public Use
  Company Number: CA-ABBVIE-15K-028-1367689-00

PATIENT
  Sex: Female

DRUGS (1)
  1. HUMIRA [Suspect]
     Active Substance: ADALIMUMAB
     Indication: CROHN^S DISEASE
     Route: 058
     Dates: start: 20130515

REACTIONS (11)
  - Ileal stenosis [Recovered/Resolved]
  - Abnormal faeces [Not Recovered/Not Resolved]
  - Disability [Recovered/Resolved]
  - Vomiting [Unknown]
  - Iron deficiency [Not Recovered/Not Resolved]
  - Incisional hernia [Not Recovered/Not Resolved]
  - Abdominal adhesions [Recovered/Resolved]
  - Frequent bowel movements [Not Recovered/Not Resolved]
  - Adhesion [Not Recovered/Not Resolved]
  - Crohn^s disease [Recovered/Resolved]
  - Pain [Not Recovered/Not Resolved]

NARRATIVE: CASE EVENT DATE: 2015
